FAERS Safety Report 20415712 (Version 5)
Quarter: 2023Q4

REPORT INFORMATION
  Report Type: Report from Study
  Country: JP (occurrence: JP)
  Receive Date: 20220202
  Receipt Date: 20231121
  Transmission Date: 20240110
  Serious: Yes (Hospitalization, Other)
  Sender: FDA-Public Use
  Company Number: JP-ASTELLAS-2022JP001851

PATIENT
  Age: 75 Year
  Sex: Male
  Weight: 60.6 kg

DRUGS (8)
  1. ENFORTUMAB VEDOTIN [Suspect]
     Active Substance: ENFORTUMAB VEDOTIN
     Indication: Transitional cell carcinoma
     Dosage: 82.5 MG,1.25MG/KG,ONCE WEEKLY ADMINISTRATION FOR 3 CONSECUTIVE WEEKS AND SUSPENSION FOR THE 4TH WEEK
     Route: 041
     Dates: start: 20220113, end: 20220113
  2. ENFORTUMAB VEDOTIN [Suspect]
     Active Substance: ENFORTUMAB VEDOTIN
     Dosage: 82.5 MG,1.25MG/KG,ONCE WEEKLY ADMINISTRATION FOR 3 CONSECUTIVE WEEKS AND SUSPENSION FOR THE 4TH WEEK
     Route: 041
     Dates: start: 20220217, end: 20220217
  3. ENFORTUMAB VEDOTIN [Suspect]
     Active Substance: ENFORTUMAB VEDOTIN
     Dosage: 73 MG,1.25MG/KG,ONCE WEEKLY ADMINISTRATION FOR 3 CONSECUTIVE WEEKS AND SUSPENSION FOR THE 4TH WEEK
     Route: 041
     Dates: start: 20220224, end: 20220303
  4. ENFORTUMAB VEDOTIN [Suspect]
     Active Substance: ENFORTUMAB VEDOTIN
     Dosage: 70 MG,1.25MG/KG,ONCE WEEKLY ADMINISTRATION FOR 3 CONSECUTIVE WEEKS AND SUSPENSION FOR THE 4TH WEEK
     Route: 041
     Dates: start: 20220317, end: 20220324
  5. PEMBROLIZUMAB [Suspect]
     Active Substance: PEMBROLIZUMAB
     Indication: Transitional cell carcinoma
     Dosage: UNK UNK, UNKNOWN FREQ.
     Route: 065
     Dates: start: 20210413, end: 20210715
  6. PACLITAXEL [Suspect]
     Active Substance: PACLITAXEL
     Indication: Product used for unknown indication
     Dosage: UNK UNK, UNKNOWN FREQ.
     Route: 041
  7. PRIMPERAN [Concomitant]
     Active Substance: METOCLOPRAMIDE HYDROCHLORIDE
     Indication: Nausea
     Dosage: UNK UNK, UNKNOWN FREQ.
     Route: 065
     Dates: start: 20220114
  8. DIFLUCORTOLONE VALERATE [Concomitant]
     Active Substance: DIFLUCORTOLONE VALERATE
     Indication: Rash
     Dosage: UNK UNK, UNKNOWN FREQ.
     Route: 065
     Dates: start: 20220120

REACTIONS (11)
  - Intestinal obstruction [Recovering/Resolving]
  - Malignant neoplasm progression [Not Recovered/Not Resolved]
  - Sepsis [Recovered/Resolved]
  - Pyelonephritis [Unknown]
  - Interstitial lung disease [Recovered/Resolved]
  - Anaemia [Recovered/Resolved]
  - Malaise [Not Recovered/Not Resolved]
  - Mucosal disorder [Unknown]
  - White blood cell count decreased [Unknown]
  - Nausea [Recovering/Resolving]
  - Rash [Recovered/Resolved]

NARRATIVE: CASE EVENT DATE: 20220114
